FAERS Safety Report 12722451 (Version 1)
Quarter: 2016Q3

REPORT INFORMATION
  Report Type: Spontaneous
  Country: US (occurrence: US)
  Receive Date: 20160907
  Receipt Date: 20160907
  Transmission Date: 20161109
  Serious: No
  Sender: FDA-Public Use
  Company Number: US-GLAXOSMITHKLINE-US2016127576

PATIENT
  Age: 67 Year
  Sex: Female

DRUGS (3)
  1. DICLOFENAC SODIUM GEL [Suspect]
     Active Substance: DICLOFENAC SODIUM
     Indication: ARTHRITIS
     Dosage: 2 G, BID
     Dates: start: 20160720
  2. CARVEDILOL TABLET [Suspect]
     Active Substance: CARVEDILOL
     Indication: PRODUCT USED FOR UNKNOWN INDICATION
     Dosage: 6.25 MG, BID
  3. CARVEDILOL TABLET [Suspect]
     Active Substance: CARVEDILOL
     Dosage: 6.25 MG, QD

REACTIONS (6)
  - Emergency care examination [Recovered/Resolved]
  - Fall [Recovered/Resolved]
  - Muscle injury [Not Recovered/Not Resolved]
  - Troponin increased [Unknown]
  - Heart rate irregular [Unknown]
  - Dizziness [Recovered/Resolved]

NARRATIVE: CASE EVENT DATE: 20160827
